FAERS Safety Report 12436393 (Version 1)
Quarter: 2016Q2

REPORT INFORMATION
  Report Type: Spontaneous
  Country: US (occurrence: US)
  Receive Date: 20160606
  Receipt Date: 20160606
  Transmission Date: 20160815
  Serious: Yes (Other)
  Sender: FDA-Public Use
  Company Number: US-ROCHE-1768413

PATIENT
  Sex: Female

DRUGS (1)
  1. RITUXAN [Suspect]
     Active Substance: RITUXIMAB
     Indication: RHEUMATOID ARTHRITIS
     Route: 065
     Dates: start: 201512

REACTIONS (6)
  - Pyrexia [Unknown]
  - Fatigue [Unknown]
  - Drug ineffective [Unknown]
  - Pruritus [Unknown]
  - Burning sensation [Unknown]
  - Stress fracture [Unknown]
